FAERS Safety Report 5029964-2 (Version None)
Quarter: 2006Q2

REPORT INFORMATION
  Report Type: 
  Country: None (occurrence: None)
  Receive Date: 20060620
  Receipt Date: 20060529
  Transmission Date: 20061013
  Serious: Yes (Life-Threatening)
  Sender: FDA-Public Use
  Company Number: JP-MERCK-0606USA00342

PATIENT
  Age: 91 Year
  Sex: Male

DRUGS (3)
  1. ALDOMET [Suspect]
     Indication: HYPERTENSION
     Route: 048
     Dates: start: 20040101, end: 20060523
  2. ENALAPRIL MALEATE [Concomitant]
     Route: 065
     Dates: start: 20050101
  3. DILTIAZEM HYDROCHLORIDE [Concomitant]
     Route: 065
     Dates: start: 20050101

REACTIONS (3)
  - PAIN [None]
  - PANCYTOPENIA [None]
  - SKIN ULCER [None]
